FAERS Safety Report 20482211 (Version 1)
Quarter: 2022Q1

REPORT INFORMATION
  Report Type: Spontaneous
  Country: GB (occurrence: GB)
  Receive Date: 20220216
  Receipt Date: 20220216
  Transmission Date: 20220423
  Serious: Yes (Death, Other)
  Sender: FDA-Public Use
  Company Number: None

PATIENT
  Age: 74 Year
  Sex: Male
  Weight: 95 kg

DRUGS (19)
  1. SODIUM CHLORIDE [Suspect]
     Active Substance: SODIUM CHLORIDE
     Indication: Medication dilution
     Dosage: DILUTED WITH TEICOPLANIN
     Route: 042
     Dates: start: 20211115
  2. SEVOFLURANE [Suspect]
     Active Substance: SEVOFLURANE
     Indication: Anaesthesia procedure
     Route: 055
     Dates: start: 20211115
  3. CHLORHEXIDINE ACETATE [Suspect]
     Active Substance: CHLORHEXIDINE ACETATE
     Indication: Surgery
     Route: 061
     Dates: start: 20211115
  4. PROPOFOL [Suspect]
     Active Substance: PROPOFOL
     Indication: Anaesthesia procedure
     Route: 065
     Dates: start: 20211115
  5. TEICOPLANIN [Suspect]
     Active Substance: TEICOPLANIN
     Indication: Antibiotic prophylaxis
     Dosage: DILUTED IN 100 ML NORMAL SALINE
     Route: 042
     Dates: start: 20211115
  6. FENTANYL [Suspect]
     Active Substance: FENTANYL
     Indication: Anaesthesia procedure
     Route: 065
     Dates: start: 20211115
  7. ROCURONIUM [Suspect]
     Active Substance: ROCURONIUM BROMIDE
     Indication: Anaesthesia procedure
     Route: 065
     Dates: start: 20211115
  8. METARAMINOL [Suspect]
     Active Substance: METARAMINOL
     Indication: Product used for unknown indication
     Route: 065
     Dates: start: 20211115
  9. GENTAMICIN [Suspect]
     Active Substance: GENTAMICIN
     Indication: Prophylaxis
     Route: 065
     Dates: start: 20211115
  10. ALENDRONIC ACID [Concomitant]
     Active Substance: ALENDRONIC ACID
     Indication: Ill-defined disorder
     Route: 065
  11. ATORVASTATIN [Concomitant]
     Active Substance: ATORVASTATIN
     Indication: Ill-defined disorder
     Route: 065
  12. CLOPIDOGREL [Concomitant]
     Active Substance: CLOPIDOGREL BISULFATE
     Indication: Ill-defined disorder
     Route: 065
  13. CHOLECALCIFEROL [Concomitant]
     Active Substance: CHOLECALCIFEROL
     Indication: Ill-defined disorder
     Route: 065
  14. LANSOPRAZOLE [Concomitant]
     Active Substance: LANSOPRAZOLE
     Indication: Ill-defined disorder
     Route: 065
  15. LOSARTAN [Concomitant]
     Active Substance: LOSARTAN
     Indication: Ill-defined disorder
     Route: 065
  16. METFORMIN [Concomitant]
     Active Substance: METFORMIN HYDROCHLORIDE
     Indication: Ill-defined disorder
     Route: 065
  17. MOMETASONE [Concomitant]
     Active Substance: MOMETASONE
     Indication: Ill-defined disorder
     Route: 065
  18. PREDNISOLONE [Concomitant]
     Active Substance: PREDNISOLONE
     Indication: Ill-defined disorder
     Route: 065
  19. ALBUTEROL [Concomitant]
     Active Substance: ALBUTEROL
     Indication: Ill-defined disorder
     Route: 065

REACTIONS (3)
  - Anaphylactic reaction [Fatal]
  - Cardiac arrest [Fatal]
  - Multiple organ dysfunction syndrome [Fatal]

NARRATIVE: CASE EVENT DATE: 20211115
